FAERS Safety Report 21253803 (Version 1)
Quarter: 2022Q3

REPORT INFORMATION
  Report Type: Spontaneous
  Country: US (occurrence: None)
  Receive Date: 20220824
  Receipt Date: 20220824
  Transmission Date: 20221027
  Serious: No
  Sender: FDA-Public Use
  Company Number: None

PATIENT
  Sex: Male

DRUGS (3)
  1. OPSUMIT [Suspect]
     Active Substance: MACITENTAN
     Indication: Pulmonary arterial hypertension
     Dosage: 10MG DAILY PO?
     Route: 048
     Dates: start: 20220819
  2. FUROSEMIDE [Concomitant]
     Active Substance: FUROSEMIDE
  3. DIGOXIN [Concomitant]
     Active Substance: DIGOXIN

REACTIONS (1)
  - Hypertension [None]
